FAERS Safety Report 11617497 (Version 2)
Quarter: 2016Q3

REPORT INFORMATION
  Report Type: Spontaneous
  Country: US (occurrence: US)
  Receive Date: 20151009
  Receipt Date: 20160927
  Transmission Date: 20161109
  Serious: No
  Sender: FDA-Public Use
  Company Number: US-PFIZER INC-2015334691

PATIENT
  Age: 84 Year
  Sex: Female
  Weight: 67 kg

DRUGS (2)
  1. PREMARIN [Suspect]
     Active Substance: ESTROGENS, CONJUGATED
     Dosage: THE SMALLEST AMOUNT, TWICE A WEEK
     Route: 067
     Dates: start: 201609
  2. PREMARIN [Suspect]
     Active Substance: ESTROGENS, CONJUGATED
     Indication: CYSTITIS
     Dosage: UNK
     Route: 067
     Dates: end: 2014

REACTIONS (6)
  - Alopecia [Unknown]
  - Bacterial test positive [Unknown]
  - Expired product administered [Unknown]
  - Drug ineffective for unapproved indication [Unknown]
  - Urine abnormality [Unknown]
  - Pollakiuria [Unknown]

NARRATIVE: CASE EVENT DATE: 201510
